FAERS Safety Report 6081880-3 (Version None)
Quarter: 2009Q1

REPORT INFORMATION
  Report Type: 
  Country: None (occurrence: None)
  Receive Date: 20090218
  Receipt Date: 20080506
  Transmission Date: 20090719
  Serious: No
  Sender: FDA-Public Use
  Company Number: US-BRISTOL-MYERS SQUIBB COMPANY-14177711

PATIENT
  Sex: Male

DRUGS (2)
  1. METFORMIN HCL [Suspect]
     Route: 065
  2. HUMIRA [Suspect]
     Dosage: 1 DOSAGE FORM: 40MG/0.8ML PRE-FILLED SYRINGE
     Route: 065

REACTIONS (3)
  - ABDOMINAL DISCOMFORT [None]
  - NASOPHARYNGITIS [None]
  - NAUSEA [None]
